FAERS Safety Report 4888446-9 (Version None)
Quarter: 2006Q1

REPORT INFORMATION
  Report Type: 
  Country: None (occurrence: None)
  Receive Date: 20060123
  Receipt Date: 20060111
  Transmission Date: 20060701
  Serious: Yes (Hospitalization)
  Sender: FDA-Public Use
  Company Number: IT-BRISTOL-MYERS SQUIBB COMPANY-13248893

PATIENT
  Age: 63 Year
  Sex: Male

DRUGS (3)
  1. CETUXIMAB [Suspect]
     Indication: PANCREATIC CARCINOMA
     Dosage: MOST RECENT INFUSION 22-SEP-05.
     Route: 041
     Dates: start: 20050914
  2. CISPLATIN [Suspect]
     Indication: PANCREATIC CARCINOMA
     Dosage: MOST RECENT INFUSION 22-SEP-05.
     Route: 042
     Dates: start: 20050914
  3. GEMCITABINE [Suspect]
     Indication: PANCREATIC CARCINOMA
     Dosage: MOST RECENT INFUSION 22-SEP-05.
     Route: 042
     Dates: start: 20050914

REACTIONS (7)
  - DIARRHOEA [None]
  - FATIGUE [None]
  - HYPERBILIRUBINAEMIA [None]
  - HYPERCREATININAEMIA [None]
  - LEUKOPENIA [None]
  - PYREXIA [None]
  - THROMBOCYTOPENIA [None]
